FAERS Safety Report 12818161 (Version 10)
Quarter: 2017Q1

REPORT INFORMATION
  Report Type: Report from Study
  Country: US (occurrence: US)
  Receive Date: 20161005
  Receipt Date: 20170328
  Transmission Date: 20170428
  Serious: Yes (Death, Hospitalization, Other)
  Sender: FDA-Public Use
  Company Number: US-ACTELION-A-NJ2016-143015

PATIENT
  Age: 55 Year
  Sex: Female
  Weight: 74.38 kg

DRUGS (4)
  1. VELETRI [Suspect]
     Active Substance: EPOPROSTENOL
     Indication: PULMONARY HYPERTENSION
     Dosage: 6 NG/KG, PER MIN
     Route: 042
     Dates: start: 20160921
  2. VELETRI [Suspect]
     Active Substance: EPOPROSTENOL
     Dosage: 8 NG/KG, PER MIN
     Route: 042
  3. SILDENAFIL. [Concomitant]
     Active Substance: SILDENAFIL
  4. REVATIO [Concomitant]
     Active Substance: SILDENAFIL CITRATE

REACTIONS (25)
  - Dizziness [Unknown]
  - Painful respiration [Unknown]
  - Lactose intolerance [Unknown]
  - Depressed mood [Unknown]
  - Diarrhoea [Unknown]
  - Acute kidney injury [Unknown]
  - Renal disorder [Unknown]
  - Hyperkalaemia [Unknown]
  - Electrolyte imbalance [Unknown]
  - Headache [Unknown]
  - Nausea [Unknown]
  - Paracentesis [Unknown]
  - Malaise [Unknown]
  - Complication associated with device [Unknown]
  - Asthenia [Unknown]
  - Hepatic cirrhosis [Unknown]
  - Hypotension [Unknown]
  - Device leakage [Unknown]
  - Death [Fatal]
  - Transplant evaluation [Unknown]
  - Hepatic failure [Unknown]
  - Flat affect [Unknown]
  - Vomiting [Unknown]
  - Pain in jaw [Unknown]
  - Fatigue [Unknown]

NARRATIVE: CASE EVENT DATE: 20170310
